FAERS Safety Report 14656253 (Version 3)
Quarter: 2018Q3

REPORT INFORMATION
  Report Type: Report from Study
  Country: GB (occurrence: GB)
  Receive Date: 20180319
  Receipt Date: 20180712
  Transmission Date: 20181010
  Serious: Yes (Hospitalization, Other)
  Sender: FDA-Public Use
  Company Number: GB-JNJFOC-20180319769

PATIENT
  Age: 56 Year
  Sex: Female
  Weight: 93.9 kg

DRUGS (5)
  1. STELARA [Suspect]
     Active Substance: USTEKINUMAB
     Indication: PSORIASIS
     Route: 058
     Dates: start: 2014, end: 20180227
  2. OMEPRAZOLE. [Concomitant]
     Active Substance: OMEPRAZOLE
     Indication: PEPTIC ULCER
     Route: 048
     Dates: start: 2000
  3. STELARA [Suspect]
     Active Substance: USTEKINUMAB
     Indication: PSORIASIS
     Route: 058
     Dates: start: 2014, end: 20180227
  4. CITALOPRAM [Concomitant]
     Active Substance: CITALOPRAM HYDROBROMIDE
     Indication: DEPRESSION
     Route: 048
     Dates: start: 2012
  5. DIAZEPAM. [Concomitant]
     Active Substance: DIAZEPAM
     Indication: BACK PAIN
     Dosage: AS NEEDED
     Route: 048
     Dates: start: 2009

REACTIONS (4)
  - Pneumonia [Unknown]
  - Lower respiratory tract infection [Unknown]
  - Chronic obstructive pulmonary disease [Recovered/Resolved]
  - Tonsillitis [Unknown]

NARRATIVE: CASE EVENT DATE: 2016
